FAERS Safety Report 6596256-X (Version None)
Quarter: 2010Q1

REPORT INFORMATION
  Report Type: 
  Country: None (occurrence: None)
  Receive Date: 20100216
  Receipt Date: 20100208
  Transmission Date: 20100710
  Serious: Yes (Life-Threatening, Hospitalization)
  Sender: FDA-Public Use
  Company Number: 20108156

PATIENT
  Age: 35 Year
  Sex: Female

DRUGS (5)
  1. LIORESAL [Suspect]
     Indication: MUSCLE SPASTICITY
     Dosage: 780-795 MCG, DAILY, INTRATHECAL
     Route: 037
  2. DIAZEPAM [Concomitant]
  3. DANTROLENE SODIUM [Concomitant]
  4. HYDROCODONE [Concomitant]
  5. ACETAMINOPHEN [Concomitant]

REACTIONS (9)
  - CAESAREAN SECTION [None]
  - DEVICE DISLOCATION [None]
  - DRUG EXPOSURE DURING PREGNANCY [None]
  - HYPOXIA [None]
  - PRE-ECLAMPSIA [None]
  - PREGNANCY [None]
  - PREMATURE LABOUR [None]
  - RESPIRATORY DISTRESS [None]
  - TACHYPNOEA [None]
